FAERS Safety Report 11515104 (Version 1)
Quarter: 2015Q3

REPORT INFORMATION
  Report Type: Spontaneous
  Country: PT (occurrence: PT)
  Receive Date: 20150916
  Receipt Date: 20150916
  Transmission Date: 20151125
  Serious: Yes (Hospitalization)
  Sender: FDA-Public Use
  Company Number: PHHY2015PT109401

PATIENT
  Age: 37 Year
  Sex: Male

DRUGS (4)
  1. MELPERON SANDOZ [Concomitant]
     Indication: AUTISM
     Dosage: 50 MG, UNK
     Route: 065
  2. CARBAMAZEPIN SANDOZ [Concomitant]
     Indication: AUTISM
     Route: 065
  3. OLANZAPINE. [Suspect]
     Active Substance: OLANZAPINE
     Indication: AUTISM
     Route: 065
  4. BIPERIDEN [Concomitant]
     Active Substance: BIPERIDEN
     Indication: AUTISM
     Route: 065

REACTIONS (1)
  - Colitis ischaemic [Unknown]
